FAERS Safety Report 23522679 (Version 1)
Quarter: 2024Q1

REPORT INFORMATION
  Report Type: Spontaneous
  Country: US (occurrence: US)
  Receive Date: 20240214
  Receipt Date: 20240214
  Transmission Date: 20240409
  Serious: No
  Sender: FDA-Public Use
  Company Number: US-BAYER-2024A023936

PATIENT
  Age: 83 Year
  Sex: Male

DRUGS (1)
  1. KOVALTRY [Suspect]
     Active Substance: ANTIHEMOPHILIC FACTOR, HUMAN RECOMBINANT
     Dosage: 2800 IU, BID

REACTIONS (2)
  - Hip arthroplasty [None]
  - Dizziness [None]

NARRATIVE: CASE EVENT DATE: 20240202
